FAERS Safety Report 12234364 (Version 1)
Quarter: 2016Q2

REPORT INFORMATION
  Report Type: Report from Study
  Country: US (occurrence: US)
  Receive Date: 20160404
  Receipt Date: 20160404
  Transmission Date: 20160815
  Serious: Yes (Other)
  Sender: FDA-Public Use
  Company Number: US-BRISTOL-MYERS SQUIBB COMPANY-BMS-2016-023509

PATIENT
  Sex: Male
  Weight: 70.75 kg

DRUGS (1)
  1. NIVOLUMAB [Suspect]
     Active Substance: NIVOLUMAB
     Indication: RENAL CELL CARCINOMA
     Dosage: UNK, Q2WK
     Route: 042

REACTIONS (8)
  - Blood potassium increased [Unknown]
  - Anaemia [Unknown]
  - Renal haematoma [Unknown]
  - Decreased appetite [Unknown]
  - Night sweats [Unknown]
  - Blood pressure fluctuation [Unknown]
  - Heart rate abnormal [Unknown]
  - Sinus disorder [Unknown]
